FAERS Safety Report 9664928 (Version 2)
Quarter: 2014Q4

REPORT INFORMATION
  Report Type: Report from Study
  Country: VE (occurrence: VE)
  Receive Date: 20131102
  Receipt Date: 20141024
  Transmission Date: 20150529
  Serious: Yes (Death, Other)
  Sender: FDA-Public Use
  Company Number: VE-ABBVIE-13P-178-1165399-00

PATIENT
  Sex: Male

DRUGS (1)
  1. ZEMPLAR [Suspect]
     Active Substance: PARICALCITOL
     Indication: CHRONIC KIDNEY DISEASE
     Dosage: 0,6ML
     Route: 065
     Dates: start: 200304, end: 201310

REACTIONS (3)
  - Infarction [Fatal]
  - Hypertensive cardiomyopathy [Unknown]
  - Ischaemic cardiomyopathy [Unknown]
